FAERS Safety Report 5258564-4 (Version None)
Quarter: 2007Q1

REPORT INFORMATION
  Report Type: 
  Country: None (occurrence: None)
  Receive Date: 20070308
  Receipt Date: 20070221
  Transmission Date: 20070707
  Serious: Yes (Other)
  Sender: FDA-Public Use
  Company Number: AT-PFIZER INC-2007015410

PATIENT
  Sex: Female

DRUGS (2)
  1. NICOTINE [Suspect]
     Indication: SMOKING CESSATION THERAPY
     Dosage: DAILY DOSE:10MG
     Route: 055
  2. ETHANOL [Suspect]
     Route: 048

REACTIONS (2)
  - ALCOHOL POISONING [None]
  - LOSS OF CONSCIOUSNESS [None]
